FAERS Safety Report 5023305-2 (Version None)
Quarter: 2006Q2

REPORT INFORMATION
  Report Type: 
  Country: None (occurrence: None)
  Receive Date: 20060501
  Receipt Date: 20060130
  Transmission Date: 20061013
  Serious: No
  Sender: FDA-Public Use
  Company Number: US166771

PATIENT
  Sex: Female

DRUGS (2)
  1. KEPIVANCE [Suspect]
     Indication: DRUG USE FOR UNKNOWN INDICATION
     Dosage: 5.7 MG
     Dates: start: 20060101
  2. METHOTREXATE [Concomitant]

REACTIONS (1)
  - TONGUE DISORDER [None]
